FAERS Safety Report 6961478-2 (Version None)
Quarter: 2010Q3

REPORT INFORMATION
  Report Type: 
  Country: None (occurrence: None)
  Receive Date: 20100823
  Receipt Date: 20100713
  Transmission Date: 20110219
  Serious: No
  Sender: FDA-Public Use
  Company Number: 007052

PATIENT
  Sex: Female
  Weight: 65.7 kg

DRUGS (14)
  1. CIMZIA [Suspect]
     Indication: RHEUMATOID ARTHRITIS
     Dosage: (400 MG SUBCUTANEOUS) ; (200 MG, EVERY 2 WEEKS SUBCUTANEOUS)
     Route: 058
     Dates: start: 20090630, end: 20091101
  2. CIMZIA [Suspect]
     Indication: RHEUMATOID ARTHRITIS
     Dosage: (400 MG SUBCUTANEOUS) ; (200 MG, EVERY 2 WEEKS SUBCUTANEOUS)
     Route: 058
     Dates: start: 20091101
  3. METHOTREXATE [Concomitant]
  4. LEUCOVORIN CALCIUM [Concomitant]
  5. KLOR-CON [Concomitant]
  6. AMILORIDE HYDROCHLORIDE [Concomitant]
  7. ATENOLOL [Concomitant]
  8. ZOLEDRONIC ACID [Concomitant]
  9. FLORASTOR [Concomitant]
  10. CLARINEX /01202601/ [Concomitant]
  11. ACIPHEX [Concomitant]
  12. ENTOCORT EC [Concomitant]
  13. VITAMIN D3 [Concomitant]
  14. IMITREX /01048801/ [Concomitant]

REACTIONS (11)
  - APHONIA [None]
  - BLOOD 25-HYDROXYCHOLECALCIFEROL [None]
  - BLOOD PRESSURE FLUCTUATION [None]
  - BODY TEMPERATURE DECREASED [None]
  - CHILLS [None]
  - FATIGUE [None]
  - HERPES VIRUS INFECTION [None]
  - MIGRAINE [None]
  - PAIN [None]
  - RESPIRATORY TRACT INFECTION [None]
  - VIRAL INFECTION [None]
